FAERS Safety Report 24086946 (Version 2)
Quarter: 2024Q4

REPORT INFORMATION
  Report Type: Spontaneous
  Country: US (occurrence: US)
  Receive Date: 20240713
  Receipt Date: 20241022
  Transmission Date: 20250115
  Serious: No
  Sender: SANOFI AVENTIS
  Company Number: US-SA-SAC20240711000110

PATIENT
  Age: 31 Year
  Sex: Male

DRUGS (1)
  1. DUPIXENT [Suspect]
     Active Substance: DUPILUMAB
     Indication: Dermatitis atopic
     Dosage: 300 MG, QOD
     Route: 058

REACTIONS (12)
  - Brain fog [Unknown]
  - Amnesia [Unknown]
  - Headache [Unknown]
  - Eye pain [Unknown]
  - Abdominal pain [Unknown]
  - Skin fissures [Unknown]
  - Skin haemorrhage [Unknown]
  - Injection site vesicles [Unknown]
  - Pruritus [Unknown]
  - Insomnia [Unknown]
  - Injection site bruising [Unknown]
  - Drug ineffective [Unknown]
